FAERS Safety Report 10341876 (Version 1)
Quarter: 2014Q3

REPORT INFORMATION
  Report Type: Spontaneous
  Country: AU (occurrence: None)
  Receive Date: 20140722
  Receipt Date: 20140722
  Transmission Date: 20150326
  Serious: Yes (Life-Threatening, Other)
  Sender: FDA-Public Use
  Company Number: AUR-APL-2014-04471

PATIENT
  Age: 38 Year
  Sex: Female

DRUGS (4)
  1. SALAZOPYRIN (SULFASALAZINE) [Concomitant]
  2. AURO-QUETIPAINE [Suspect]
     Active Substance: QUETIAPINE FUMARATE
     Indication: PRODUCT USED FOR UNKNOWN INDICATION
  3. VALIUM [Suspect]
     Active Substance: DIAZEPAM
     Indication: PRODUCT USED FOR UNKNOWN INDICATION
  4. THYROXINE (LEVOTHYROXINE SODIUM) [Concomitant]
     Active Substance: LEVOTHYROXINE

REACTIONS (3)
  - Caesarean section [None]
  - Exposure during pregnancy [None]
  - Labour complication [None]

NARRATIVE: CASE EVENT DATE: 20120623
